FAERS Safety Report 9157179 (Version 2)
Quarter: 2013Q2

REPORT INFORMATION
  Report Type: Spontaneous
  Country: JP (occurrence: JP)
  Receive Date: 20130312
  Receipt Date: 20130612
  Transmission Date: 20140414
  Serious: Yes (Life-Threatening)
  Sender: FDA-Public Use
  Company Number: JP-PFIZER INC-2013083376

PATIENT
  Age: 44 Year
  Sex: Female
  Weight: 79 kg

DRUGS (6)
  1. AMLODIN [Suspect]
     Dosage: 5 MG X 200 DF
     Route: 048
     Dates: start: 20130304, end: 20130304
  2. AMLODIN [Suspect]
     Dosage: 1070 MG
     Dates: start: 20130304, end: 20130304
  3. DOXAZOSIN MESILATE [Suspect]
     Dosage: 0.5 MG X 40DF (42 MILLIGRAM/DAY)
     Route: 048
     Dates: start: 20130304, end: 20130304
  4. ALFLOSIN [Concomitant]
     Dosage: 42 MG/DAY
     Route: 048
     Dates: start: 20130304, end: 20130304
  5. SERTRALINE HYDROCHLORIDE [Concomitant]
     Route: 048
  6. CARDENALIN [Concomitant]
     Dosage: 30 MG, DAY
     Route: 048
     Dates: start: 20130304, end: 20130304

REACTIONS (2)
  - Intentional overdose [Unknown]
  - Hypotension [Not Recovered/Not Resolved]
